FAERS Safety Report 22182794 (Version 2)
Quarter: 2023Q4

REPORT INFORMATION
  Report Type: Report from Study
  Country: US (occurrence: US)
  Receive Date: 20230406
  Receipt Date: 20231010
  Transmission Date: 20240109
  Serious: Yes (Other)
  Sender: FDA-Public Use
  Company Number: US-TAKEDA-US201910885

PATIENT
  Sex: Male

DRUGS (1)
  1. HUMAN IMMUNOGLOBULIN G [Suspect]
     Active Substance: HUMAN IMMUNOGLOBULIN G
     Indication: Hypogammaglobulinaemia
     Dosage: UNK
     Route: 042

REACTIONS (6)
  - Diverticulitis [Unknown]
  - Haemochromatosis [Unknown]
  - Blood immunoglobulin G decreased [Unknown]
  - Blood iron decreased [Unknown]
  - Lower respiratory tract infection [Unknown]
  - Sinusitis [Unknown]
